FAERS Safety Report 12882880 (Version 1)
Quarter: 2016Q4

REPORT INFORMATION
  Report Type: Spontaneous
  Country: US (occurrence: US)
  Receive Date: 20161025
  Receipt Date: 20161025
  Transmission Date: 20170207
  Serious: No
  Sender: FDA-Public Use
  Company Number: US-ACTAVIS-2016-07413

PATIENT
  Age: 11 Year
  Sex: Female

DRUGS (1)
  1. GUANFACINE (AELLC) [Suspect]
     Active Substance: GUANFACINE
     Indication: ATTENTION DEFICIT/HYPERACTIVITY DISORDER
     Dosage: UNK, UNKNOWN
     Route: 065

REACTIONS (5)
  - Therapeutic response changed [Unknown]
  - Insomnia [Unknown]
  - Aggression [Unknown]
  - Stubbornness [Unknown]
  - Restless legs syndrome [Unknown]
